FAERS Safety Report 11749076 (Version 1)
Quarter: 2015Q4

REPORT INFORMATION
  Report Type: Spontaneous
  Country: US (occurrence: US)
  Receive Date: 20151118
  Receipt Date: 20151118
  Transmission Date: 20160304
  Serious: Yes (Death)
  Sender: FDA-Public Use
  Company Number: US-ROCHE-1662511

PATIENT
  Age: 84 Year
  Sex: Female

DRUGS (1)
  1. XELODA [Suspect]
     Active Substance: CAPECITABINE
     Indication: COLON CANCER
     Dosage: BID FOR 2 WKS ON THEN 1
     Route: 048
     Dates: start: 20150912

REACTIONS (1)
  - Death [Fatal]

NARRATIVE: CASE EVENT DATE: 20151101
